FAERS Safety Report 25263120 (Version 1)
Quarter: 2025Q2

REPORT INFORMATION
  Report Type: Report from Study
  Country: NL (occurrence: NL)
  Receive Date: 20250502
  Receipt Date: 20250502
  Transmission Date: 20250717
  Serious: Yes (Hospitalization)
  Sender: AZURITY PHARMACEUTICALS
  Company Number: NL-AZURITY PHARMACEUTICALS, INC.-AZR202503-001218

PATIENT
  Age: 79 Year
  Sex: Male

DRUGS (2)
  1. TRIPTORELIN [Suspect]
     Active Substance: TRIPTORELIN
     Indication: Prostate cancer
     Route: 030
     Dates: start: 20240313
  2. TRIPTORELIN [Suspect]
     Active Substance: TRIPTORELIN
     Route: 030
     Dates: start: 20250310

REACTIONS (7)
  - Tremor [Unknown]
  - Fluid retention [Unknown]
  - Malaise [Unknown]
  - Diarrhoea [Unknown]
  - Hypotension [Unknown]
  - Pyrexia [Unknown]
  - Chills [Unknown]
